FAERS Safety Report 4680265-1 (Version None)
Quarter: 2005Q2

REPORT INFORMATION
  Report Type: 
  Country: None (occurrence: None)
  Receive Date: 20050601
  Receipt Date: 20050520
  Transmission Date: 20051028
  Serious: Yes (Other)
  Sender: FDA-Public Use
  Company Number: HQWYE395805JAN05

PATIENT
  Sex: Female

DRUGS (3)
  1. PANTOZOL (PANTOPRAZOLE, INJECTION) [Suspect]
     Indication: GASTRITIS HAEMORRHAGIC
     Dosage: 40 MG 3X PER 1 DAY, INTRAVENOUS
     Route: 042
     Dates: start: 20041224
  2. PANTOPRAZOLE SODIUM [Suspect]
     Dosage: 40 MG 1X PER 1 DAY, ORAL
     Route: 048
     Dates: start: 20041210, end: 20041223
  3. TACROLIMUS (TACROLIMUS, ) [Suspect]

REACTIONS (3)
  - EPILEPSY [None]
  - LOSS OF CONSCIOUSNESS [None]
  - NERVOUS SYSTEM DISORDER [None]
